FAERS Safety Report 10512238 (Version 1)
Quarter: 2014Q4

REPORT INFORMATION
  Report Type: Report from Study
  Country: US (occurrence: US)
  Receive Date: 20141010
  Receipt Date: 20141010
  Transmission Date: 20150528
  Serious: Yes (Other)
  Sender: FDA-Public Use
  Company Number: PHEH2013US027022

PATIENT
  Sex: Male

DRUGS (1)
  1. EXFORGE [Suspect]
     Active Substance: AMLODIPINE BESYLATE\VALSARTAN
     Indication: PRODUCT USED FOR UNKNOWN INDICATION
     Dosage: UNK IN THE MORNING AND OTHER WHEN WENT TO BED
     Route: 065
     Dates: start: 20131121

REACTIONS (2)
  - Diabetes mellitus [Unknown]
  - Rotator cuff syndrome [Unknown]
